FAERS Safety Report 18454186 (Version 1)
Quarter: 2020Q4

REPORT INFORMATION
  Report Type: Spontaneous
  Country: IN (occurrence: IN)
  Receive Date: 20201102
  Receipt Date: 20201102
  Transmission Date: 20210114
  Serious: Yes (Death, Other)
  Sender: FDA-Public Use
  Company Number: IN-JNJFOC-20201042908

PATIENT
  Age: 23 Year
  Sex: Female

DRUGS (11)
  1. MOXIFLOXACIN. [Suspect]
     Active Substance: MOXIFLOXACIN
     Indication: TUBERCULOSIS
     Route: 065
     Dates: start: 20191014
  2. GLYCOPYRONIUM [Concomitant]
     Active Substance: GLYCOPYRRONIUM
     Indication: DYSPNOEA
     Route: 065
     Dates: start: 20191014
  3. DELAMANID [Suspect]
     Active Substance: DELAMANID
     Indication: TUBERCULOSIS
     Route: 065
     Dates: start: 20191014
  4. PYRIDOXINE [Concomitant]
     Active Substance: PYRIDOXINE
     Indication: NEUROPATHY PERIPHERAL
     Route: 065
     Dates: start: 20191014
  5. INDACATEROL [Concomitant]
     Active Substance: INDACATEROL
     Indication: DYSPNOEA
     Route: 065
     Dates: start: 20191014
  6. CLOFAZIMINE [Suspect]
     Active Substance: CLOFAZIMINE
     Indication: TUBERCULOSIS
     Route: 065
  7. METOCLOPRAMIDE. [Concomitant]
     Active Substance: METOCLOPRAMIDE
     Indication: ANTIEMETIC SUPPORTIVE CARE
     Route: 065
     Dates: start: 20191014
  8. SIRTURO [Suspect]
     Active Substance: BEDAQUILINE FUMARATE
     Indication: TUBERCULOSIS
     Route: 048
     Dates: start: 20191014
  9. OMEPRAZOLE. [Concomitant]
     Active Substance: OMEPRAZOLE
     Indication: ANTACID THERAPY
     Route: 065
     Dates: start: 20191014
  10. LINEZOLID. [Suspect]
     Active Substance: LINEZOLID
     Indication: TUBERCULOSIS
     Route: 065
     Dates: start: 20191014
  11. ONDASETRON                         /00955301/ [Concomitant]
     Active Substance: ONDANSETRON
     Indication: VOMITING
     Route: 065
     Dates: start: 20191014

REACTIONS (3)
  - Off label use [Unknown]
  - Respiratory failure [Fatal]
  - Intentional product use issue [Unknown]

NARRATIVE: CASE EVENT DATE: 20201022
